FAERS Safety Report 14957106 (Version 1)
Quarter: 2018Q2

REPORT INFORMATION
  Report Type: Spontaneous
  Country: US (occurrence: US)
  Receive Date: 20180531
  Receipt Date: 20180531
  Transmission Date: 20180711
  Serious: No
  Sender: FDA-Public Use
  Company Number: US-ELI_LILLY_AND_COMPANY-US201805013747

PATIENT
  Sex: Female

DRUGS (5)
  1. HUMULIN N [Suspect]
     Active Substance: INSULIN HUMAN
     Dosage: 30 U, DAILY (EACH NIGHT)
     Route: 058
     Dates: start: 201708
  2. HUMULIN R [Suspect]
     Active Substance: INSULIN HUMAN
     Dosage: 10 U, DAILY (EACH AFTERNOON)
     Route: 058
     Dates: start: 201708
  3. HUMULIN R [Suspect]
     Active Substance: INSULIN HUMAN
     Dosage: 10 U, TID
     Route: 058
  4. HUMULIN R [Suspect]
     Active Substance: INSULIN HUMAN
     Indication: TYPE 2 DIABETES MELLITUS
     Dosage: 20 U, EACH MORNING
     Route: 058
     Dates: start: 201708
  5. HUMULIN N [Suspect]
     Active Substance: INSULIN HUMAN
     Indication: TYPE 2 DIABETES MELLITUS
     Dosage: 40 U, EACH MORNING
     Route: 058
     Dates: start: 201708

REACTIONS (2)
  - Blood glucose increased [Not Recovered/Not Resolved]
  - Drug ineffective [Unknown]
